FAERS Safety Report 9895870 (Version 1)
Quarter: 2014Q1

REPORT INFORMATION
  Report Type: Spontaneous
  Country: US (occurrence: US)
  Receive Date: 20140213
  Receipt Date: 20140213
  Transmission Date: 20141002
  Serious: No
  Sender: FDA-Public Use
  Company Number: US-BRISTOL-MYERS SQUIBB COMPANY-17296856

PATIENT
  Age: 18 Year
  Sex: Female

DRUGS (1)
  1. ORENCIA FOR INJ [Suspect]
     Indication: JUVENILE IDIOPATHIC ARTHRITIS
     Dosage: RECENT DOSE AUG 2012
     Route: 042
     Dates: start: 20101015

REACTIONS (1)
  - Drug dose omission [Unknown]
